FAERS Safety Report 6001306-5 (Version None)
Quarter: 2008Q4

REPORT INFORMATION
  Report Type: 
  Country: None (occurrence: None)
  Receive Date: 20081215
  Receipt Date: 20081205
  Transmission Date: 20090506
  Serious: Yes (Other)
  Sender: FDA-Public Use
  Company Number: PHHY2008BR31057

PATIENT
  Sex: Male

DRUGS (2)
  1. GALVUS MET COMBIPACK [Suspect]
     Dosage: 850/50 MG
     Route: 048
     Dates: start: 20081128
  2. GALVUS MET COMBIPACK [Suspect]
     Dosage: 50/850 MG
     Route: 048
     Dates: start: 20081102

REACTIONS (4)
  - BLOOD GLUCOSE INCREASED [None]
  - DIZZINESS [None]
  - FEELING ABNORMAL [None]
  - NECK PAIN [None]
